FAERS Safety Report 10682623 (Version 2)
Quarter: 2015Q1

REPORT INFORMATION
  Report Type: Spontaneous
  Country: FR (occurrence: FR)
  Receive Date: 20141230
  Receipt Date: 20150218
  Transmission Date: 20150720
  Serious: Yes (Other)
  Sender: FDA-Public Use
  Company Number: FR-PFIZER INC-2014356801

PATIENT
  Age: 49 Year
  Sex: Male
  Weight: 80 kg

DRUGS (3)
  1. GABAPENTINE PFIZER [Suspect]
     Active Substance: GABAPENTIN
     Dosage: 800 MG, 3X/DAY
  2. TEGRETOL XR [Concomitant]
     Active Substance: CARBAMAZEPINE
     Dosage: 400 UNK, UNK
     Route: 048
  3. EFFERALGAN [Concomitant]
     Active Substance: ACETAMINOPHEN
     Dosage: 1 G, UNK
     Route: 048

REACTIONS (1)
  - Epilepsy [Recovering/Resolving]

NARRATIVE: CASE EVENT DATE: 20140810
